FAERS Safety Report 23061900 (Version 1)
Quarter: 2023Q4

REPORT INFORMATION
  Report Type: Spontaneous
  Country: US (occurrence: US)
  Receive Date: 20231013
  Receipt Date: 20231013
  Transmission Date: 20240110
  Serious: No
  Sender: FDA-Public Use
  Company Number: US-OPELLA-2023OHG008621

PATIENT
  Sex: Male

DRUGS (1)
  1. MENTHOL [Suspect]
     Active Substance: MENTHOL
     Dosage: DOSE STRENGTH 5 G/100 G
     Route: 065

REACTIONS (2)
  - Drug ineffective [Unknown]
  - No adverse event [Unknown]
